FAERS Safety Report 26118263 (Version 1)
Quarter: 2025Q4

REPORT INFORMATION
  Report Type: Spontaneous
  Country: EU (occurrence: EU)
  Receive Date: 20251203
  Receipt Date: 20251203
  Transmission Date: 20260118
  Serious: Yes (Life-Threatening, Hospitalization)
  Sender: MYLAN
  Company Number: None

PATIENT
  Age: 40 Year
  Sex: Female
  Weight: 83 kg

DRUGS (8)
  1. KETOPROFEN [Suspect]
     Active Substance: KETOPROFEN
     Indication: Complex regional pain syndrome
     Dosage: 100 MILLIGRAM, QD
  2. KETOPROFEN [Suspect]
     Active Substance: KETOPROFEN
     Dosage: 100 MILLIGRAM, QD
     Route: 048
  3. KETOPROFEN [Suspect]
     Active Substance: KETOPROFEN
     Dosage: 100 MILLIGRAM, QD
     Route: 048
  4. KETOPROFEN [Suspect]
     Active Substance: KETOPROFEN
     Dosage: 100 MILLIGRAM, QD
  5. ETHINYL ESTRADIOL\LEVONORGESTREL [Suspect]
     Active Substance: ETHINYL ESTRADIOL\LEVONORGESTREL
     Indication: Oral contraception
     Dosage: 1 DOSAGE FORM, QD (3 WEEKS / 4 WEEKS )
     Dates: start: 202412, end: 20250724
  6. ETHINYL ESTRADIOL\LEVONORGESTREL [Suspect]
     Active Substance: ETHINYL ESTRADIOL\LEVONORGESTREL
     Dosage: 1 DOSAGE FORM, QD (3 WEEKS / 4 WEEKS )
     Route: 048
     Dates: start: 202412, end: 20250724
  7. ETHINYL ESTRADIOL\LEVONORGESTREL [Suspect]
     Active Substance: ETHINYL ESTRADIOL\LEVONORGESTREL
     Dosage: 1 DOSAGE FORM, QD (3 WEEKS / 4 WEEKS )
     Route: 048
     Dates: start: 202412, end: 20250724
  8. ETHINYL ESTRADIOL\LEVONORGESTREL [Suspect]
     Active Substance: ETHINYL ESTRADIOL\LEVONORGESTREL
     Dosage: 1 DOSAGE FORM, QD (3 WEEKS / 4 WEEKS )
     Dates: start: 202412, end: 20250724

REACTIONS (1)
  - Ischaemic cerebral infarction [Recovered/Resolved with Sequelae]

NARRATIVE: CASE EVENT DATE: 20250722
